FAERS Safety Report 5023217-4 (Version None)
Quarter: 2006Q2

REPORT INFORMATION
  Report Type: 
  Country: None (occurrence: None)
  Receive Date: 20060612
  Receipt Date: 20060607
  Transmission Date: 20061013
  Serious: Yes (Other)
  Sender: FDA-Public Use
  Company Number: JP-AVENTIS-200611750JP

PATIENT

DRUGS (4)
  1. TAXOTERE [Suspect]
     Indication: LARYNGEAL CANCER
     Route: 041
  2. RADIOTHERAPY [Concomitant]
     Indication: LARYNGEAL CANCER
     Dosage: DOSE: 68 GY/TOTAL
  3. CDDP [Concomitant]
     Indication: LARYNGEAL CANCER
  4. FLUOROURACIL [Concomitant]
     Indication: LARYNGEAL CANCER

REACTIONS (4)
  - NEOPLASM RECURRENCE [None]
  - PHARYNGEAL FISTULA [None]
  - PHARYNGEAL ULCERATION [None]
  - RADIATION INJURY [None]
